FAERS Safety Report 4375918-9 (Version None)
Quarter: 2004Q2

REPORT INFORMATION
  Report Type: 
  Country: None (occurrence: None)
  Receive Date: 20040609
  Receipt Date: 20040609
  Transmission Date: 20050107
  Serious: Yes (Hospitalization)
  Sender: FDA-Public Use
  Company Number: None

PATIENT
  Age: 57 Year
  Sex: Female
  Weight: 48 kg

DRUGS (2)
  1. MESALAMINE [Suspect]
     Indication: CROHN'S DISEASE
     Dosage: PO QID
     Route: 048
  2. APAP TAB [Concomitant]

REACTIONS (3)
  - ANAEMIA [None]
  - ANAL STENOSIS [None]
  - DYSPHAGIA [None]
